FAERS Safety Report 18931242 (Version 1)
Quarter: 2021Q1

REPORT INFORMATION
  Report Type: Not Available
  Country: US (occurrence: US)
  Receive Date: 20210224
  Receipt Date: 20210224
  Transmission Date: 20210420
  Serious: No
  Sender: FDA-Public Use
  Company Number: US-NEUROCRINE BIOSCIENCES INC.-2021NBI00739

PATIENT
  Age: 61 Year
  Sex: Female

DRUGS (2)
  1. INGREZZA [Suspect]
     Active Substance: VALBENAZINE
     Indication: TARDIVE DYSKINESIA
     Dosage: 7 DAYS
     Route: 048
     Dates: start: 20210109, end: 20210115
  2. INGREZZA [Suspect]
     Active Substance: VALBENAZINE
     Dosage: 7 DAYS
     Route: 048
     Dates: start: 20210116

REACTIONS (3)
  - Mood altered [Unknown]
  - Somnolence [Unknown]
  - Asthenia [Unknown]

NARRATIVE: CASE EVENT DATE: 2021
